FAERS Safety Report 14778036 (Version 3)
Quarter: 2018Q2

REPORT INFORMATION
  Report Type: Spontaneous
  Country: JP (occurrence: JP)
  Receive Date: 20180419
  Receipt Date: 20180501
  Transmission Date: 20180711
  Serious: Yes (Hospitalization)
  Sender: FDA-Public Use
  Company Number: JP-BAYER-199907653GDS

PATIENT
  Age: 87 Year
  Sex: Female
  Weight: 39 kg

DRUGS (5)
  1. PRAVASTATIN SODIUM. [Concomitant]
     Active Substance: PRAVASTATIN SODIUM
     Indication: HYPERLIPIDAEMIA
     Dosage: DAILY DOSE 10 MG
     Route: 048
     Dates: start: 19990719, end: 19990819
  2. QUINAPRIL HYDROCHLORIDE. [Concomitant]
     Active Substance: QUINAPRIL HYDROCHLORIDE
     Indication: HYPERTENSION
     Dosage: DAILY DOSE 10 MG
     Route: 048
     Dates: start: 19990719, end: 19990819
  3. GLUCOBAY [Suspect]
     Active Substance: ACARBOSE
     Indication: DIABETES MELLITUS
     Dosage: DAILY DOSE 300 MG
     Route: 048
     Dates: start: 19990709, end: 19990817
  4. ORCIPRENALINE SULFATE [Concomitant]
     Indication: ATRIOVENTRICULAR BLOCK SECOND DEGREE
     Dosage: DAILY DOSE 30 MG
     Route: 048
     Dates: start: 19990713, end: 19990819
  5. TRAPIDIL [Concomitant]
     Active Substance: TRAPIDIL
     Indication: ATRIOVENTRICULAR BLOCK SECOND DEGREE
     Dosage: DAILY DOSE 300 MG
     Route: 048
     Dates: start: 19990713, end: 19990816

REACTIONS (3)
  - Hepatic failure [Recovered/Resolved]
  - Renal failure [Recovered/Resolved]
  - Disseminated intravascular coagulation [Recovered/Resolved]

NARRATIVE: CASE EVENT DATE: 19990825
